FAERS Safety Report 23063950 (Version 2)
Quarter: 2023Q4

REPORT INFORMATION
  Report Type: Spontaneous
  Country: JP (occurrence: None)
  Receive Date: 20231013
  Receipt Date: 20231103
  Transmission Date: 20240109
  Serious: Yes (Other)
  Sender: FDA-Public Use
  Company Number: 2023A227865

PATIENT
  Age: 85 Year
  Sex: Male

DRUGS (1)
  1. ONDEXXYA [Suspect]
     Active Substance: ANDEXANET ALFA
     Indication: Subarachnoid haemorrhage
     Dosage: DOSE UNKNOWN1760.0MG UNKNOWN
     Route: 042

REACTIONS (1)
  - Hydrocephalus [Unknown]
